FAERS Safety Report 4932901-X (Version None)
Quarter: 2006Q1

REPORT INFORMATION
  Report Type: 
  Country: None (occurrence: None)
  Receive Date: 20060306
  Receipt Date: 20060217
  Transmission Date: 20060701
  Serious: Yes (Hospitalization, Other)
  Sender: FDA-Public Use
  Company Number: PHEH2006US02346

PATIENT
  Age: 73 Year
  Sex: Female

DRUGS (11)
  1. GLEEVEC [Suspect]
     Indication: CHRONIC MYELOID LEUKAEMIA
     Dosage: 400 MG, QD
     Route: 048
     Dates: start: 20051220, end: 20051223
  2. GLEEVEC [Suspect]
     Dosage: 400 MG, QD
     Route: 048
     Dates: start: 20060213, end: 20060215
  3. GLEEVEC [Suspect]
     Dosage: 200 MG, QD
     Route: 048
     Dates: start: 20060220
  4. SYNTHROID [Concomitant]
     Dosage: 0.75 MG, QD
     Route: 048
  5. LASIX [Concomitant]
     Dosage: 20 MG, QD
     Route: 048
  6. POTASSIUM CHLORIDE [Concomitant]
     Dosage: 10 MEQ, BID
     Route: 048
     Dates: start: 20060118
  7. POTASSIUM CHLORIDE [Concomitant]
     Route: 042
     Dates: start: 20051208
  8. ALLEGRA [Concomitant]
     Dosage: 10 MG, QD
     Route: 048
  9. AMBIEN [Concomitant]
     Dosage: 10 MG, QHS
     Route: 048
     Dates: start: 20060101
  10. OPIUM ALKALOIDS TOTAL [Concomitant]
     Dosage: UNK, PRN
     Route: 054
  11. BELLADONNA ALKALOIDS [Concomitant]

REACTIONS (10)
  - ABDOMINAL PAIN [None]
  - ABDOMINAL PAIN UPPER [None]
  - CHEST PAIN [None]
  - DISSEMINATED INTRAVASCULAR COAGULATION [None]
  - HEADACHE [None]
  - HYPOKALAEMIA [None]
  - LEUKOCYTOSIS [None]
  - PANCREATITIS [None]
  - URINARY TRACT INFECTION FUNGAL [None]
  - VOMITING [None]
